FAERS Safety Report 21522338 (Version 1)
Quarter: 2022Q4

REPORT INFORMATION
  Report Type: Spontaneous
  Country: SA (occurrence: SA)
  Receive Date: 20221028
  Receipt Date: 20221028
  Transmission Date: 20230112
  Serious: Yes (Death, Life-Threatening, Other)
  Sender: FDA-Public Use
  Company Number: SA-STRIDES ARCOLAB LIMITED-2022SP014154

PATIENT
  Age: 22 Year
  Sex: Female

DRUGS (1)
  1. LIDOCAINE [Suspect]
     Active Substance: LIDOCAINE
     Indication: Pain management
     Dosage: UNK
     Route: 061

REACTIONS (4)
  - Cardio-respiratory arrest [Fatal]
  - Toxicity to various agents [Fatal]
  - Seizure [Not Recovered/Not Resolved]
  - Maternal exposure during pregnancy [Unknown]
